FAERS Safety Report 21888959 (Version 1)
Quarter: 2023Q1

REPORT INFORMATION
  Report Type: Spontaneous
  Country: US (occurrence: US)
  Receive Date: 20230120
  Receipt Date: 20230120
  Transmission Date: 20230417
  Serious: No
  Sender: FDA-Public Use
  Company Number: US-SA-SAC20230117000265

PATIENT
  Age: 57 Year
  Sex: Female
  Weight: 87.9 kg

DRUGS (26)
  1. AUBAGIO [Suspect]
     Active Substance: TERIFLUNOMIDE
     Indication: Multiple sclerosis
     Dosage: 14 MG, QD
     Route: 048
  2. CETIRIZINE HYDROCHLORIDE [Concomitant]
     Active Substance: CETIRIZINE HYDROCHLORIDE
  3. EPINEPHRINE [Concomitant]
     Active Substance: EPINEPHRINE
  4. ACETAMINOPHEN [Concomitant]
     Active Substance: ACETAMINOPHEN
  5. DIPHENHYDRAMINE [Concomitant]
     Active Substance: DIPHENHYDRAMINE
  6. LIDOCAINE [Concomitant]
     Active Substance: LIDOCAINE
  7. CUVITRU [Concomitant]
     Active Substance: HUMAN IMMUNOGLOBULIN G
  8. CHLORTHALIDONE [Concomitant]
     Active Substance: CHLORTHALIDONE
  9. NORCO [Concomitant]
     Active Substance: ACETAMINOPHEN\HYDROCODONE BITARTRATE
     Dosage: UNK
  10. NAPROXEN [Concomitant]
     Active Substance: NAPROXEN
  11. GABAPENTIN [Concomitant]
     Active Substance: GABAPENTIN
  12. ZYRTEC [Concomitant]
     Active Substance: CETIRIZINE HYDROCHLORIDE
  13. VITAMIN D3 [Concomitant]
     Active Substance: CHOLECALCIFEROL
  14. CYANOCOBALAMIN [Concomitant]
     Active Substance: CYANOCOBALAMIN
  15. PROGESTERONE [Concomitant]
     Active Substance: PROGESTERONE
  16. ORACEA [DOXYCYCLINE] [Concomitant]
  17. PRILOSEC [Concomitant]
     Active Substance: OMEPRAZOLE MAGNESIUM
  18. NASALCROM [Concomitant]
     Active Substance: CROMOLYN SODIUM
  19. SINGULAIR [Concomitant]
     Active Substance: MONTELUKAST SODIUM
  20. ATIVAN [Concomitant]
     Active Substance: LORAZEPAM
  21. XHANCE [Concomitant]
     Active Substance: FLUTICASONE PROPIONATE
  22. ESTRADIOL [Concomitant]
     Active Substance: ESTRADIOL
     Dosage: 0.05 MG, QD
  23. DULOXETINE HYDROCHLORIDE [Concomitant]
     Active Substance: DULOXETINE HYDROCHLORIDE
  24. BUPROPION HYDROCHLORIDE [Concomitant]
     Active Substance: BUPROPION HYDROCHLORIDE
     Dosage: 150 MG, BID
  25. BIOTIN [Concomitant]
     Active Substance: BIOTIN
  26. LIPITOR [Concomitant]
     Active Substance: ATORVASTATIN CALCIUM

REACTIONS (1)
  - Sinusitis [Unknown]
